FAERS Safety Report 5119161-4 (Version None)
Quarter: 2006Q3

REPORT INFORMATION
  Report Type: 
  Country: None (occurrence: None)
  Receive Date: 20060929
  Receipt Date: 20060929
  Transmission Date: 20061208
  Serious: Yes (Death, Hospitalization)
  Sender: FDA-Public Use
  Company Number: None

PATIENT
  Age: 11 Year
  Sex: Female
  Weight: 34.25 kg

DRUGS (13)
  1. IRESSA -GEFITINIB-   25 MG/100MG    ASTRAZENECA [Suspect]
     Indication: DESMOPLASTIC SMALL ROUND CELL TUMOUR
     Dosage: 175 MG  QD X 12 DAYS  PO
     Route: 048
     Dates: start: 20060915, end: 20060920
  2. IRINOTECAN     20 MG/ML     COMMERCIALLY AVAILABLE [Suspect]
     Indication: DESMOPLASTIC SMALL ROUND CELL TUMOUR
     Dosage: 5.9 MG   -QD X 5 DAYS-   X 2   PO
     Route: 048
     Dates: start: 20060913, end: 20060920
  3. MIRALAX [Concomitant]
  4. SULFAMETHOXAZOLE + TRIMETHOPRIM [Concomitant]
  5. LOPERAMIDE [Concomitant]
  6. DULCOLAX [Concomitant]
  7. DOCUSATE-SENNA [Concomitant]
  8. CODEINE [Concomitant]
  9. CYCLOBENZAPRINE [Concomitant]
  10. TYLENOL (CAPLET) [Concomitant]
  11. NAPROXEN [Concomitant]
  12. ONDANSETRON [Concomitant]
  13. ACETAMINOPHEN AND CODEINE PHOSPHATE [Concomitant]

REACTIONS (21)
  - ABDOMINAL DISTENSION [None]
  - ABDOMINAL PAIN UPPER [None]
  - ALANINE AMINOTRANSFERASE INCREASED [None]
  - APNOEA [None]
  - ASCITES [None]
  - ASPARTATE AMINOTRANSFERASE INCREASED [None]
  - BACK PAIN [None]
  - BLOOD BILIRUBIN INCREASED [None]
  - COAGULOPATHY [None]
  - DISEASE PROGRESSION [None]
  - DRUG TOXICITY [None]
  - EPISTAXIS [None]
  - FLATULENCE [None]
  - HEPATIC FUNCTION ABNORMAL [None]
  - LIVER DISORDER [None]
  - LUNG DISORDER [None]
  - PAIN [None]
  - PLATELET COUNT DECREASED [None]
  - PULMONARY EMBOLISM [None]
  - SMALL INTESTINAL OBSTRUCTION [None]
  - TUMOUR HAEMORRHAGE [None]
